FAERS Safety Report 6497242-0 (Version None)
Quarter: 2009Q4

REPORT INFORMATION
  Report Type: 
  Country: None (occurrence: None)
  Receive Date: 20091215
  Receipt Date: 20090708
  Transmission Date: 20100525
  Serious: No
  Sender: FDA-Public Use
  Company Number: A0796905A

PATIENT
  Sex: Male

DRUGS (1)
  1. AVODART [Suspect]
     Indication: DRUG USE FOR UNKNOWN INDICATION
     Dosage: .5MG UNKNOWN
     Route: 065

REACTIONS (3)
  - ADVERSE DRUG REACTION [None]
  - ILL-DEFINED DISORDER [None]
  - NASAL CONGESTION [None]
